FAERS Safety Report 12657718 (Version 2)
Quarter: 2016Q4

REPORT INFORMATION
  Report Type: Spontaneous
  Country: US (occurrence: US)
  Receive Date: 20160816
  Receipt Date: 20161003
  Transmission Date: 20170207
  Serious: No
  Sender: FDA-Public Use
  Company Number: US-ASTRAZENECA-2016SE85537

PATIENT
  Age: 22681 Day
  Sex: Female
  Weight: 79.4 kg

DRUGS (8)
  1. LEXAPRO [Concomitant]
     Active Substance: ESCITALOPRAM OXALATE
     Indication: DEPRESSION
     Route: 048
     Dates: start: 20160624
  2. SEROQUEL XR [Suspect]
     Active Substance: QUETIAPINE FUMARATE
     Indication: BIPOLAR DISORDER
     Dosage: 1.0DF UNKNOWN
     Route: 048
     Dates: start: 20160801
  3. SEROQUEL XR [Suspect]
     Active Substance: QUETIAPINE FUMARATE
     Indication: BIPOLAR DISORDER
     Dosage: 300.0MG UNKNOWN
     Route: 048
     Dates: start: 201605
  4. SEROQUEL XR [Suspect]
     Active Substance: QUETIAPINE FUMARATE
     Indication: PSYCHOTIC DISORDER
     Dosage: 300.0MG UNKNOWN
     Route: 048
     Dates: start: 201605
  5. ARMOUR THYROID [Concomitant]
     Active Substance: THYROID, PORCINE
     Indication: HYPOTHYROIDISM
     Route: 048
  6. ABILIFY [Concomitant]
     Active Substance: ARIPIPRAZOLE
     Dates: start: 20160801
  7. SEROQUEL XR [Suspect]
     Active Substance: QUETIAPINE FUMARATE
     Indication: PSYCHOTIC DISORDER
     Dosage: 1.0DF UNKNOWN
     Route: 048
     Dates: start: 20160801
  8. KLONOPIN [Concomitant]
     Active Substance: CLONAZEPAM
     Dates: start: 2013

REACTIONS (10)
  - Vision blurred [Not Recovered/Not Resolved]
  - Nasal dryness [Unknown]
  - Dry throat [Unknown]
  - Drug dose omission [Unknown]
  - Breath odour [Recovered/Resolved]
  - Dysphagia [Unknown]
  - Urine odour abnormal [Recovered/Resolved]
  - Product colour issue [Unknown]
  - Dry mouth [Unknown]
  - Off label use [Recovered/Resolved]

NARRATIVE: CASE EVENT DATE: 20160701
